FAERS Safety Report 12864659 (Version 1)
Quarter: 2016Q4

REPORT INFORMATION
  Report Type: Spontaneous
  Country: GB (occurrence: GB)
  Receive Date: 20161020
  Receipt Date: 20161020
  Transmission Date: 20170207
  Serious: Yes (Disabling)
  Sender: FDA-Public Use
  Company Number: GB-ACCORD-044988

PATIENT
  Age: 65 Year
  Sex: Male
  Weight: 94 kg

DRUGS (6)
  1. RAMIPRIL. [Suspect]
     Active Substance: RAMIPRIL
     Indication: PRODUCT USED FOR UNKNOWN INDICATION
     Dates: start: 20160930
  2. NAPROXEN. [Concomitant]
     Active Substance: NAPROXEN
     Indication: ARTHRALGIA
     Dosage: TWICE DAILY
     Dates: start: 20160906, end: 20160920
  3. INDAPAMIDE/INDAPAMIDE HEMIHYDRATE [Concomitant]
     Dosage: EACH MORNING
     Dates: start: 20160919
  4. FELODIPINE. [Concomitant]
     Active Substance: FELODIPINE
     Dates: start: 20160722, end: 20160906
  5. TAMSULOSIN/TAMSULOSIN HYDROCHLORIDE [Concomitant]
     Dosage: EACH MORNING
     Dates: start: 20160527
  6. DICLOFENAC [Concomitant]
     Active Substance: DICLOFENAC
     Dates: start: 20160722, end: 20160805

REACTIONS (2)
  - Pain [Unknown]
  - Joint swelling [Recovering/Resolving]

NARRATIVE: CASE EVENT DATE: 20160930
